FAERS Safety Report 25978332 (Version 1)
Quarter: 2025Q4

REPORT INFORMATION
  Report Type: Spontaneous
  Country: US (occurrence: US)
  Receive Date: 20251030
  Receipt Date: 20251030
  Transmission Date: 20260117
  Serious: Yes (Other)
  Sender: ABBVIE
  Company Number: US-ABBVIE-6522286

PATIENT
  Sex: Male

DRUGS (1)
  1. EMRELIS [Suspect]
     Active Substance: TELISOTUZUMAB VEDOTIN-TLLV
     Indication: Lung cancer metastatic
     Dosage: UNKNOWN
     Route: 042
     Dates: start: 20251027

REACTIONS (1)
  - Generalised tonic-clonic seizure [Unknown]

NARRATIVE: CASE EVENT DATE: 20251027
